FAERS Safety Report 12105414 (Version 4)
Quarter: 2016Q3

REPORT INFORMATION
  Report Type: Spontaneous
  Country: GB (occurrence: GB)
  Receive Date: 20160223
  Receipt Date: 20160711
  Transmission Date: 20161109
  Serious: Yes (Hospitalization, Disabling)
  Sender: FDA-Public Use
  Company Number: PHFR2016GB001636

PATIENT
  Age: 58 Year
  Sex: Female

DRUGS (1)
  1. ELTROMBOPAG [Suspect]
     Active Substance: ELTROMBOPAG
     Indication: IMMUNE THROMBOCYTOPENIC PURPURA
     Dosage: 75 MG, QD
     Route: 048
     Dates: start: 201410, end: 20151117

REACTIONS (3)
  - Intracranial venous sinus thrombosis [Recovered/Resolved with Sequelae]
  - Visual acuity reduced [Unknown]
  - Blindness [Unknown]

NARRATIVE: CASE EVENT DATE: 20151117
